FAERS Safety Report 7828632-9 (Version None)
Quarter: 2011Q4

REPORT INFORMATION
  Report Type: 
  Country: None (occurrence: None)
  Receive Date: 20111020
  Receipt Date: 20111013
  Transmission Date: 20120403
  Serious: Yes (Hospitalization, Other)
  Sender: FDA-Public Use
  Company Number: PHHY2011JP78280

PATIENT
  Age: 72 Year
  Sex: Male

DRUGS (3)
  1. OXALIPLATIN [Suspect]
     Indication: MALIGNANT ASCITES
     Dosage: UNK
  2. FLUOROURACIL [Suspect]
     Indication: MALIGNANT ASCITES
     Dosage: UNK
  3. LEUCOVORIN CALCIUM [Suspect]
     Indication: MALIGNANT ASCITES
     Dosage: UNK

REACTIONS (5)
  - COUGH [None]
  - RASH [None]
  - LUNG INFILTRATION [None]
  - PYREXIA [None]
  - INTERSTITIAL LUNG DISEASE [None]
